FAERS Safety Report 10193097 (Version 2)
Quarter: 2014Q2

REPORT INFORMATION
  Report Type: Spontaneous
  Country: US (occurrence: US)
  Receive Date: 20140524
  Receipt Date: 20140524
  Transmission Date: 20141212
  Serious: No
  Sender: FDA-Public Use
  Company Number: US-SANOFI-AVENTIS-2013SA013201

PATIENT
  Sex: Female

DRUGS (4)
  1. SOLOSTAR [Suspect]
  2. LANTUS SOLOSTAR [Suspect]
     Dosage: IN AM DOSE:40 UNIT(S)
     Route: 058
     Dates: start: 20130208, end: 20130208
  3. LANTUS SOLOSTAR [Suspect]
     Dosage: DOSE:40 UNIT(S)
     Route: 058
  4. BYETTA [Suspect]

REACTIONS (2)
  - Blood glucose increased [Unknown]
  - Wrong drug administered [Unknown]
